FAERS Safety Report 8767566 (Version 1)
Quarter: 2012Q4

REPORT INFORMATION
  Report Type: 
  Country: DK (occurrence: GB)
  Receive Date: 20120904
  Receipt Date: 20120904
  Transmission Date: 20130627
  Serious: Yes (Other)
  Sender: FDA-Public Use
  Company Number: GB-FRI-1000038298

PATIENT
  Age: 24 Year
  Sex: Female
  Weight: 62 kg

DRUGS (6)
  1. CITALOPRAM [Suspect]
     Indication: DEPRESSION
     Dosage: 20 mg
     Route: 048
     Dates: start: 20120309, end: 20120309
  2. CODEINE [Concomitant]
  3. LEVONELLE [Concomitant]
  4. NUROFEN [Concomitant]
  5. PARACETAMOL [Concomitant]
  6. VALERIAN [Concomitant]

REACTIONS (13)
  - Anxiety [Recovered/Resolved with Sequelae]
  - Decreased appetite [Recovered/Resolved]
  - Respiratory rate increased [Unknown]
  - Depression [Recovering/Resolving]
  - Mydriasis [Recovered/Resolved]
  - Dizziness [Unknown]
  - Fear [Unknown]
  - Feeling abnormal [Unknown]
  - Nausea [Unknown]
  - Panic attack [Recovered/Resolved]
  - Panic reaction [Recovered/Resolved]
  - Paraesthesia [Unknown]
  - Tremor [Recovered/Resolved]
